FAERS Safety Report 24904989 (Version 3)
Quarter: 2025Q1

REPORT INFORMATION
  Report Type: Spontaneous
  Country: US (occurrence: US)
  Receive Date: 20250130
  Receipt Date: 20250326
  Transmission Date: 20250408
  Serious: Yes (Death, Hospitalization, Other)
  Sender: PFIZER
  Company Number: US-PFIZER INC-PV202300054362

PATIENT
  Age: 85 Year
  Sex: Male
  Weight: 53.52 kg

DRUGS (2)
  1. TIKOSYN [Suspect]
     Active Substance: DOFETILIDE
     Indication: Atrial fibrillation
     Dates: start: 2022
  2. TIKOSYN [Suspect]
     Active Substance: DOFETILIDE
     Dosage: 0.250 MG, 2X/DAY
     Dates: start: 2022, end: 20241212

REACTIONS (1)
  - Interstitial lung disease [Fatal]
